FAERS Safety Report 7639981-1 (Version None)
Quarter: 2011Q3

REPORT INFORMATION
  Report Type: 
  Country: None (occurrence: None)
  Receive Date: 20110727
  Receipt Date: 20110721
  Transmission Date: 20111222
  Serious: Yes (Death)
  Sender: FDA-Public Use
  Company Number: IL-ROCHE-791672

PATIENT
  Sex: Male

DRUGS (9)
  1. LYRICA [Concomitant]
  2. VASODIP [Concomitant]
     Indication: HYPERTENSION
  3. METHOXY POLYETHYLENE GLYCOL-EPOETIN BETA [Suspect]
     Dosage: FREQUENCY REPORTED ONCE
     Route: 042
     Dates: start: 20110703, end: 20110703
  4. CALCIUM CARBONATE [Concomitant]
  5. PAROXETINE HCL [Concomitant]
  6. FUSID [Concomitant]
     Indication: HYPERTENSION
  7. INSULIN [Concomitant]
     Indication: DIABETES MELLITUS
  8. DIMITONE [Concomitant]
     Indication: HYPERTENSION
  9. VABEN [Concomitant]
     Indication: ANXIETY

REACTIONS (3)
  - VENTRICULAR TACHYCARDIA [None]
  - CARDIO-RESPIRATORY ARREST [None]
  - DEATH [None]
